FAERS Safety Report 13211549 (Version 10)
Quarter: 2017Q4

REPORT INFORMATION
  Report Type: Spontaneous
  Country: US (occurrence: US)
  Receive Date: 20170210
  Receipt Date: 20171129
  Transmission Date: 20180320
  Serious: Yes (Hospitalization, Congenital Anomaly, Other)
  Sender: FDA-Public Use
  Company Number: PHEH2017US004000

PATIENT
  Sex: Female

DRUGS (3)
  1. ZOFRAN [Suspect]
     Active Substance: ONDANSETRON HYDROCHLORIDE
     Indication: FOETAL EXPOSURE DURING PREGNANCY
     Dosage: MOTHER^S DOSE: 8 MG, PRN
     Route: 064
  2. ZOFRAN ODT [Suspect]
     Active Substance: ONDANSETRON HYDROCHLORIDE
     Indication: FOETAL EXPOSURE DURING PREGNANCY
     Route: 064
  3. ZOFRAN [Suspect]
     Active Substance: ONDANSETRON HYDROCHLORIDE
     Indication: FOETAL EXPOSURE DURING PREGNANCY
     Route: 064

REACTIONS (78)
  - Asthma [Unknown]
  - Endocarditis [Unknown]
  - Premature baby [Unknown]
  - Staring [Unknown]
  - Influenza [Unknown]
  - Dehydration [Unknown]
  - Hypoglycaemia [Unknown]
  - Acidosis [Unknown]
  - Lung hyperinflation [Unknown]
  - Ventricular septal defect [Unknown]
  - Laryngomalacia [Unknown]
  - Neonatal pneumonia [Unknown]
  - Tracheal stenosis [Unknown]
  - Intraventricular haemorrhage neonatal [Recovered/Resolved]
  - Respiratory disorder [Unknown]
  - Cardiac disorder [Unknown]
  - Epilepsy [Unknown]
  - Interstitial lung disease [Unknown]
  - Hypoxia [Unknown]
  - Foetal exposure during pregnancy [Unknown]
  - Speech disorder developmental [Unknown]
  - Rhinitis allergic [Unknown]
  - Viral infection [Unknown]
  - Cough [Unknown]
  - Body height below normal [Unknown]
  - Foetal distress syndrome [Unknown]
  - Seizure [Unknown]
  - Osteopenia [Unknown]
  - Dysphagia [Unknown]
  - Heart disease congenital [Unknown]
  - Cerebral palsy [Unknown]
  - Bronchopulmonary dysplasia [Unknown]
  - Gastritis [Unknown]
  - Neonatal respiratory distress syndrome [Unknown]
  - Pulmonary oedema neonatal [Unknown]
  - Dacryostenosis acquired [Unknown]
  - Quadriplegia [Unknown]
  - Bacteraemia [Unknown]
  - Enterococcal sepsis [Unknown]
  - Bronchiolitis [Unknown]
  - Pyrexia [Unknown]
  - Injury [Unknown]
  - Upper respiratory tract infection [Unknown]
  - Hernia [Unknown]
  - Pleural effusion [Unknown]
  - Facial bones fracture [Unknown]
  - Bronchitis [Unknown]
  - Abdominal distension [Unknown]
  - Dizziness [Unknown]
  - Foetal heart rate increased [Unknown]
  - Retinopathy of prematurity [Unknown]
  - Atelectasis neonatal [Unknown]
  - Cardiac failure congestive [Unknown]
  - Enterococcal bacteraemia [Unknown]
  - Small for dates baby [Unknown]
  - Dyspnoea [Unknown]
  - Feeding intolerance [Unknown]
  - Gastrooesophageal reflux disease [Unknown]
  - Sleep disorder [Unknown]
  - Bronchial hyperreactivity [Unknown]
  - Fallot^s tetralogy [Recovered/Resolved]
  - Pulmonary hypoplasia [Unknown]
  - Developmental delay [Unknown]
  - Bronchomalacia [Unknown]
  - Cardiomegaly [Unknown]
  - Hypophagia [Unknown]
  - Granuloma [Unknown]
  - Dystonia [Unknown]
  - Movement disorder [Unknown]
  - Microcephaly [Unknown]
  - Foetal growth restriction [Unknown]
  - Tracheomalacia [Unknown]
  - Failure to thrive [Unknown]
  - Atypical pneumonia [Unknown]
  - Haematemesis [Unknown]
  - Pulmonary congestion [Unknown]
  - Urinary tract infection [Unknown]
  - Underweight [Unknown]
